FAERS Safety Report 7261348-9 (Version None)
Quarter: 2011Q1

REPORT INFORMATION
  Report Type: 
  Country: None (occurrence: None)
  Receive Date: 20110130
  Receipt Date: 20101011
  Transmission Date: 20110831
  Serious: Yes (Hospitalization, Congenital Anomaly)
  Sender: FDA-Public Use
  Company Number: US-ABBOTT-10P-163-0677313-00

PATIENT
  Sex: Female
  Weight: 83.99 kg

DRUGS (6)
  1. PRISTIQ [Concomitant]
     Indication: DEPRESSION
  2. SYNTHROID [Concomitant]
     Indication: THYROID DISORDER
  3. HUMIRA [Suspect]
     Dates: start: 20100701, end: 20100901
  4. HUMIRA [Suspect]
     Indication: RHEUMATOID ARTHRITIS
     Dates: start: 20070201, end: 20080101
  5. MENEST [Concomitant]
     Indication: MENOPAUSE
  6. OXYCODONE [Concomitant]
     Indication: PAIN
     Dosage: AS NEEDED.

REACTIONS (6)
  - FATIGUE [None]
  - TOOTH INFECTION [None]
  - INJECTION SITE REACTION [None]
  - RHEUMATOID ARTHRITIS [None]
  - ROAD TRAFFIC ACCIDENT [None]
  - ARTHRALGIA [None]
